FAERS Safety Report 7335123-0 (Version None)
Quarter: 2011Q1

REPORT INFORMATION
  Report Type: 
  Country: None (occurrence: None)
  Receive Date: 20110307
  Receipt Date: 20110301
  Transmission Date: 20110831
  Serious: Yes (Other)
  Sender: FDA-Public Use
  Company Number: US-BAYER-2011-020328

PATIENT
  Sex: Female

DRUGS (1)
  1. YAZ [Suspect]
     Dosage: UNK
     Route: 048
     Dates: start: 20090621, end: 20090629

REACTIONS (7)
  - MIGRAINE [None]
  - PHLEBITIS [None]
  - DEHYDRATION [None]
  - VEIN DISORDER [None]
  - PAIN [None]
  - VOMITING [None]
  - INJURY [None]
